FAERS Safety Report 23717385 (Version 1)
Quarter: 2024Q2

REPORT INFORMATION
  Report Type: Spontaneous
  Country: SE (occurrence: SE)
  Receive Date: 20240408
  Receipt Date: 20240408
  Transmission Date: 20240716
  Serious: Yes (Life-Threatening, Hospitalization)
  Sender: FDA-Public Use
  Company Number: None

PATIENT
  Age: 77 Year
  Sex: Male
  Weight: 78 kg

DRUGS (4)
  1. OXALIPLATIN [Suspect]
     Active Substance: OXALIPLATIN
     Indication: Rectal cancer
     Dosage: 235MG EVERY 3 WEEKS, STRENGTH: 5
     Dates: start: 20240226, end: 20240226
  2. ONDANSETRON [Concomitant]
     Active Substance: ONDANSETRON
     Dosage: 16MG
     Dates: start: 20240226, end: 20240226
  3. CLEMASTINE FUMARATE [Concomitant]
     Active Substance: CLEMASTINE FUMARATE
     Dosage: 1MG
     Dates: start: 20240226, end: 20240226
  4. BETAPRED [Concomitant]
     Active Substance: BETAMETHASONE SODIUM PHOSPHATE
     Dosage: 20 MG END
     Dates: start: 20240225, end: 20240226

REACTIONS (11)
  - Rhabdomyolysis [Recovering/Resolving]
  - Renal failure [Recovering/Resolving]
  - Gait inability [Recovering/Resolving]
  - Muscular weakness [Recovering/Resolving]
  - Hypokalaemia [Recovering/Resolving]
  - Motor dysfunction [Recovering/Resolving]
  - Neurotoxicity [Recovering/Resolving]
  - Aphasia [Recovering/Resolving]
  - Paraesthesia [Recovering/Resolving]
  - Dyspnoea [Recovering/Resolving]
  - Feeling cold [Recovering/Resolving]

NARRATIVE: CASE EVENT DATE: 20240101
